FAERS Safety Report 20797115 (Version 3)
Quarter: 2022Q2

REPORT INFORMATION
  Report Type: Spontaneous
  Country: US (occurrence: US)
  Receive Date: 20220506
  Receipt Date: 20220526
  Transmission Date: 20220721
  Serious: No
  Sender: FDA-Public Use
  Company Number: US-PFIZER INC-202200617767

PATIENT
  Age: 62 Year
  Sex: Female

DRUGS (2)
  1. IBRANCE [Suspect]
     Active Substance: PALBOCICLIB
     Dosage: DAILY REGIMEN IS FOR 21 DAYS, FOLLOWED BY 7 DAYS OFF
     Dates: start: 20191217
  2. IBRANCE [Suspect]
     Active Substance: PALBOCICLIB
     Dosage: DAILY REGIMEN IS FOR 21 DAYS, FOLLOWED BY 7 DAYS OFF

REACTIONS (1)
  - Abdominal pain upper [Not Recovered/Not Resolved]
